FAERS Safety Report 11413707 (Version 1)
Quarter: 2015Q3

REPORT INFORMATION
  Report Type: Spontaneous
  Country: FR (occurrence: FR)
  Receive Date: 20150824
  Receipt Date: 20150824
  Transmission Date: 20151125
  Serious: Yes (Hospitalization)
  Sender: FDA-Public Use
  Company Number: FR-PFIZER INC-2015275154

PATIENT
  Age: 68 Year
  Sex: Male

DRUGS (12)
  1. NEORAL [Concomitant]
     Active Substance: CYCLOSPORINE
  2. UVEDOSE [Concomitant]
     Active Substance: CHOLECALCIFEROL
     Dosage: EVERY 30DAYS
  3. ZYVOXID [Suspect]
     Active Substance: LINEZOLID
     Indication: ENTEROCOCCAL INFECTION
     Dosage: UNK
     Route: 048
     Dates: start: 20150610, end: 20150616
  4. KEPPRA [Concomitant]
     Active Substance: LEVETIRACETAM
  5. URBANYL [Concomitant]
     Active Substance: CLOBAZAM
  6. LEXOMIL [Concomitant]
     Active Substance: BROMAZEPAM
  7. SPECIAFOLDINE [Concomitant]
     Active Substance: FOLIC ACID
  8. MIRTAZAPINE. [Interacting]
     Active Substance: MIRTAZAPINE
     Dosage: UNK
     Route: 048
     Dates: end: 20150616
  9. PANTOPRAZOLE [Concomitant]
     Active Substance: PANTOPRAZOLE SODIUM
  10. HYDROCORTISONE. [Concomitant]
     Active Substance: HYDROCORTISONE
  11. XATRAL [Concomitant]
     Active Substance: ALFUZOSIN
  12. ARANESP [Concomitant]
     Active Substance: DARBEPOETIN ALFA

REACTIONS (5)
  - Drug interaction [Recovered/Resolved]
  - Serotonin syndrome [Recovered/Resolved]
  - Hallucination [Recovered/Resolved]
  - Confusional state [Recovered/Resolved]
  - Hypertension [Recovered/Resolved]

NARRATIVE: CASE EVENT DATE: 20150610
